FAERS Safety Report 6918808-7 (Version None)
Quarter: 2010Q3

REPORT INFORMATION
  Report Type: 
  Country: None (occurrence: None)
  Receive Date: 20100723
  Receipt Date: 20090819
  Transmission Date: 20110219
  Serious: Yes (Other)
  Sender: FDA-Public Use
  Company Number: 2009244314

PATIENT
  Age: 66 Year
  Sex: Female
  Weight: 60.8 kg

DRUGS (8)
  1. DEPO-MEDROL [Suspect]
     Indication: ROTATOR CUFF SYNDROME
     Dosage: 40 MG, SINGLE
     Dates: start: 20090713, end: 20090713
  2. DEPO-MEDROL [Suspect]
     Indication: TENDONITIS
     Dosage: 40 MG, SINGLE
     Dates: start: 20090713, end: 20090713
  3. PROCAINE (PROCAINE) [Concomitant]
  4. LEVOTHYROXINE SODIUM [Concomitant]
  5. ASPIRIN [Concomitant]
  6. IBANDRONATE SODIUM [Concomitant]
  7. INSULIN GLARGINE (INSULIN GLARGINE) [Concomitant]
  8. INSULIN LISPRO (INSULIN LISPRO) [Concomitant]

REACTIONS (2)
  - BLOOD GLUCOSE FLUCTUATION [None]
  - VITREOUS FLOATERS [None]
